FAERS Safety Report 10842572 (Version 1)
Quarter: 2015Q1

REPORT INFORMATION
  Report Type: Report from Study
  Country: US (occurrence: US)
  Receive Date: 20150220
  Receipt Date: 20150220
  Transmission Date: 20150721
  Serious: No
  Sender: FDA-Public Use
  Company Number: US-ABBVIE-14P-163-1274361-00

PATIENT
  Sex: Male

DRUGS (14)
  1. WARFARIN [Concomitant]
     Active Substance: WARFARIN
     Dosage: THREE DAYS A WEEK
  2. HYDROCODONE [Concomitant]
     Active Substance: HYDROCODONE
     Indication: ARTHRALGIA
     Dosage: 10/325 MG EVERY 4-6 HOURS
  3. METFORMIN [Concomitant]
     Active Substance: METFORMIN HYDROCHLORIDE
     Indication: TYPE 2 DIABETES MELLITUS
     Dosage: TWO PILLS
  4. HYDROXYZINE HCL [Concomitant]
     Active Substance: HYDROXYZINE HYDROCHLORIDE
     Indication: PSORIASIS
  5. TRAMADOL [Concomitant]
     Active Substance: TRAMADOL
     Indication: PAIN
  6. AMLODIPINE [Concomitant]
     Active Substance: AMLODIPINE BESYLATE
     Indication: HYPERTENSION
  7. HUMIRA [Suspect]
     Active Substance: ADALIMUMAB
     Dates: start: 20140702
  8. ASPIRIN. [Concomitant]
     Active Substance: ASPIRIN
     Indication: ATRIAL FIBRILLATION
  9. GABAPENTIN. [Concomitant]
     Active Substance: GABAPENTIN
     Indication: NEUROPATHY PERIPHERAL
  10. HUMIRA [Suspect]
     Active Substance: ADALIMUMAB
     Indication: PSORIASIS
     Dates: start: 20140625, end: 20140625
  11. CYMBALTA [Concomitant]
     Active Substance: DULOXETINE HYDROCHLORIDE
     Indication: FIBROMYALGIA
  12. HYDROCODONE [Concomitant]
     Active Substance: HYDROCODONE
     Indication: MUSCULOSKELETAL PAIN
  13. WARFARIN [Concomitant]
     Active Substance: WARFARIN
     Indication: ATRIAL FIBRILLATION
     Dosage: FOUR DAYS A WEEK
  14. CARISOPRODOL. [Concomitant]
     Active Substance: CARISOPRODOL
     Indication: ARTHRITIS

REACTIONS (1)
  - Urinary tract obstruction [Not Recovered/Not Resolved]
